FAERS Safety Report 9059191 (Version 1)
Quarter: 2013Q1

REPORT INFORMATION
  Report Type: Spontaneous
  Country: JP (occurrence: JP)
  Receive Date: 20130211
  Receipt Date: 20130211
  Transmission Date: 20140127
  Serious: Yes (Other)
  Sender: FDA-Public Use
  Company Number: JP-US-EMD SERONO, INC.-7188825

PATIENT
  Age: 30 Year
  Sex: Female

DRUGS (2)
  1. SEROPHENE [Suspect]
     Indication: PRODUCT USED FOR UNKNOWN INDICATION
     Route: 048
     Dates: start: 20130112, end: 20130113
  2. KAMISHOYOSAN TSUMIRA [Concomitant]
     Indication: FEELING COLD
     Route: 048
     Dates: start: 20130112, end: 20130113

REACTIONS (1)
  - Gastroenteritis [Recovered/Resolved]
